FAERS Safety Report 18899248 (Version 1)
Quarter: 2021Q1

REPORT INFORMATION
  Report Type: Spontaneous
  Country: RO (occurrence: RO)
  Receive Date: 20210216
  Receipt Date: 20210216
  Transmission Date: 20210420
  Serious: Yes (Other)
  Sender: FDA-Public Use
  Company Number: RO-ASTRAZENECA-2021A049379

PATIENT
  Age: 64 Year
  Sex: Female

DRUGS (5)
  1. PACLITAXEL. [Concomitant]
     Active Substance: PACLITAXEL
     Dosage: PACLITAXEL 200 MG / M2
  2. CARBOPLATIN. [Concomitant]
     Active Substance: CARBOPLATIN
     Dosage: AUC 6
  3. CARBOPLATIN. [Concomitant]
     Active Substance: CARBOPLATIN
     Dosage: AUC 2 WEEKLY, 4 SERIES
  4. DURVALUMAB. [Suspect]
     Active Substance: DURVALUMAB
     Indication: NON-SMALL CELL LUNG CANCER STAGE III
     Dosage: 10 MG / KG IS INITIATED EVERY 2 WEEKS
     Route: 042
     Dates: start: 202009
  5. PACLITAXEL. [Concomitant]
     Active Substance: PACLITAXEL
     Dosage: 50 MG / M2

REACTIONS (3)
  - Enterobacter infection [Recovered/Resolved]
  - Staphylococcal infection [Unknown]
  - COVID-19 [Unknown]
